FAERS Safety Report 21179410 (Version 1)
Quarter: 2022Q3

REPORT INFORMATION
  Report Type: Spontaneous
  Country: US (occurrence: US)
  Receive Date: 20220805
  Receipt Date: 20220805
  Transmission Date: 20221027
  Serious: No
  Sender: FDA-Public Use
  Company Number: US-Calliditas-2022CAL00243

PATIENT
  Age: 40 Year
  Sex: Female

DRUGS (2)
  1. TARPEYO [Suspect]
     Active Substance: BUDESONIDE
     Indication: Haematuria
     Dosage: 16 MG (4MG CAPSULES) ONCE DAILY
     Route: 048
     Dates: start: 20220311
  2. PAXLOVID [Concomitant]
     Active Substance: NIRMATRELVIR\RITONAVIR

REACTIONS (5)
  - COVID-19 [Unknown]
  - Chills [Unknown]
  - Cough [Unknown]
  - Pain [Unknown]
  - Drug interaction [Unknown]
